FAERS Safety Report 20536794 (Version 2)
Quarter: 2022Q4

REPORT INFORMATION
  Report Type: Report from Study
  Country: JP (occurrence: JP)
  Receive Date: 20220302
  Receipt Date: 20221103
  Transmission Date: 20230112
  Serious: Yes (Hospitalization)
  Sender: FDA-Public Use
  Company Number: JP-JNJFOC-20210908914

PATIENT
  Age: 68 Year
  Sex: Male

DRUGS (32)
  1. ABIRATERONE ACETATE [Suspect]
     Active Substance: ABIRATERONE ACETATE
     Indication: Hormone-dependent prostate cancer
     Dosage: 1 WEEK 6 DAYS
     Route: 048
     Dates: start: 20210804, end: 20210816
  2. ABIRATERONE ACETATE [Suspect]
     Active Substance: ABIRATERONE ACETATE
     Route: 048
     Dates: start: 20210915, end: 20210928
  3. ABIRATERONE ACETATE [Suspect]
     Active Substance: ABIRATERONE ACETATE
     Route: 048
     Dates: start: 20210929, end: 20211026
  4. ABIRATERONE ACETATE [Suspect]
     Active Substance: ABIRATERONE ACETATE
     Route: 048
     Dates: start: 20211027, end: 20211123
  5. ABIRATERONE ACETATE [Suspect]
     Active Substance: ABIRATERONE ACETATE
     Route: 048
     Dates: start: 20211124, end: 20211221
  6. ABIRATERONE ACETATE [Suspect]
     Active Substance: ABIRATERONE ACETATE
     Route: 048
     Dates: start: 20211222, end: 20220118
  7. ABIRATERONE ACETATE [Suspect]
     Active Substance: ABIRATERONE ACETATE
     Route: 048
     Dates: start: 20220119, end: 20220215
  8. ABIRATERONE ACETATE [Suspect]
     Active Substance: ABIRATERONE ACETATE
     Route: 048
     Dates: start: 20220216, end: 20220315
  9. ABIRATERONE ACETATE [Suspect]
     Active Substance: ABIRATERONE ACETATE
     Route: 048
     Dates: start: 20220316, end: 20220412
  10. ABIRATERONE ACETATE [Suspect]
     Active Substance: ABIRATERONE ACETATE
     Route: 048
     Dates: start: 20220413, end: 20220418
  11. ABIRATERONE ACETATE [Suspect]
     Active Substance: ABIRATERONE ACETATE
     Route: 048
     Dates: start: 20220421, end: 20220510
  12. ABIRATERONE ACETATE [Suspect]
     Active Substance: ABIRATERONE ACETATE
     Route: 048
     Dates: start: 20220511, end: 20220607
  13. ABIRATERONE ACETATE [Suspect]
     Active Substance: ABIRATERONE ACETATE
     Route: 048
     Dates: start: 20220608, end: 20220705
  14. ABIRATERONE ACETATE [Suspect]
     Active Substance: ABIRATERONE ACETATE
     Route: 048
     Dates: start: 20220706, end: 20220802
  15. ABIRATERONE ACETATE [Suspect]
     Active Substance: ABIRATERONE ACETATE
     Route: 048
     Dates: start: 20220803, end: 20220927
  16. CAPIVASERTIB [Suspect]
     Active Substance: CAPIVASERTIB
     Indication: Hormone-dependent prostate cancer
     Route: 065
     Dates: start: 20210804, end: 20210807
  17. CAPIVASERTIB [Suspect]
     Active Substance: CAPIVASERTIB
     Route: 065
     Dates: start: 20210811, end: 20210814
  18. CAPIVASERTIB [Suspect]
     Active Substance: CAPIVASERTIB
     Route: 065
     Dates: start: 20210816
  19. CARTEOLOL HYDROCHLORIDE [Concomitant]
     Active Substance: CARTEOLOL HYDROCHLORIDE
     Indication: Prophylaxis
     Dosage: 2 % DAILY
     Route: 031
     Dates: start: 2014
  20. PREDNISOLONE [Concomitant]
     Active Substance: PREDNISOLONE
     Indication: Drug therapy
     Route: 048
     Dates: start: 20210804, end: 20210907
  21. BILASTINE [Concomitant]
     Active Substance: BILASTINE
     Indication: Product used for unknown indication
     Route: 065
  22. REBAMIPIDE [Concomitant]
     Active Substance: REBAMIPIDE
     Indication: Prophylaxis
     Route: 031
     Dates: start: 2014, end: 20210808
  23. EPINASTINE HYDROCHLORIDE [Concomitant]
     Active Substance: EPINASTINE HYDROCHLORIDE
     Indication: Seasonal allergy
     Route: 031
     Dates: start: 2014, end: 20210808
  24. SILODOSIN [Concomitant]
     Active Substance: SILODOSIN
     Indication: Benign prostatic hyperplasia
     Route: 048
     Dates: start: 20210815, end: 20210816
  25. SILODOSIN [Concomitant]
     Active Substance: SILODOSIN
     Dates: start: 20210817
  26. SILODOSIN [Concomitant]
     Active Substance: SILODOSIN
     Dates: end: 20210722
  27. GOSERELIN ACETATE [Concomitant]
     Active Substance: GOSERELIN ACETATE
     Indication: Hormone-dependent prostate cancer
     Route: 058
     Dates: start: 20210804
  28. TOZINAMERAN [Concomitant]
     Active Substance: TOZINAMERAN
     Indication: COVID-19 prophylaxis
     Route: 065
     Dates: start: 20210703, end: 20210724
  29. BETAMETHASONE DIPROPIONATE [Concomitant]
     Active Substance: BETAMETHASONE DIPROPIONATE
     Dates: start: 20210716, end: 20210817
  30. CLOTRIMAZOLE [Concomitant]
     Active Substance: CLOTRIMAZOLE
     Dates: start: 20210716, end: 20210716
  31. NEOMYCIN [Concomitant]
     Active Substance: NEOMYCIN
     Indication: Radioactive iodine therapy
     Dates: start: 20210716, end: 20210716
  32. IOVERSOL [Concomitant]
     Active Substance: IOVERSOL
     Indication: Scan with contrast
     Dates: start: 20210721, end: 20210721

REACTIONS (1)
  - Erythema multiforme [Recovered/Resolved]

NARRATIVE: CASE EVENT DATE: 20210815
